FAERS Safety Report 7296708-3 (Version None)
Quarter: 2011Q1

REPORT INFORMATION
  Report Type: 
  Country: None (occurrence: None)
  Receive Date: 20110202
  Receipt Date: 20110114
  Transmission Date: 20110831
  Serious: Yes (Other)
  Sender: FDA-Public Use
  Company Number: AEUSA201100010

PATIENT
  Age: 33 Year
  Sex: Female
  Weight: 63.5036 kg

DRUGS (7)
  1. PERCOCET [Concomitant]
  2. NEURONTIN [Concomitant]
  3. KLONOPIN [Concomitant]
  4. CYMBALTA [Concomitant]
  5. GAMUNEX [Suspect]
     Indication: MULTIPLE SCLEROSIS
     Dosage: 20 GM, QOW; IV
     Route: 042
     Dates: start: 20060601
  6. BACLOFEN [Concomitant]
  7. PROVIGIL [Concomitant]

REACTIONS (1)
  - GENITAL HERPES [None]
